FAERS Safety Report 19326293 (Version 1)
Quarter: 2021Q2

REPORT INFORMATION
  Report Type: Spontaneous
  Country: CA (occurrence: CA)
  Receive Date: 20210528
  Receipt Date: 20210528
  Transmission Date: 20210717
  Serious: Yes (Other)
  Sender: FDA-Public Use
  Company Number: CA-LEO PHARMA-336649

PATIENT
  Age: 82 Year
  Sex: Male

DRUGS (1)
  1. PICATO [Suspect]
     Active Substance: INGENOL MEBUTATE
     Indication: ACTINIC KERATOSIS
     Dosage: PICATO 0.05%  1 EVERY 1 DAY TOPICAL???STOPPED ? PARTIAL :
     Route: 061

REACTIONS (1)
  - Skin cancer [Recovering/Resolving]
